FAERS Safety Report 9491767 (Version 1)
Quarter: 2013Q3

REPORT INFORMATION
  Report Type: Not Available
  Country: US (occurrence: US)
  Receive Date: 20130919
  Receipt Date: 20130919
  Transmission Date: 20140515
  Serious: Yes (Other)
  Sender: FDA-Public Use
  Company Number: US-LUNDBECK-DKLU1083086

PATIENT
  Sex: Male

DRUGS (6)
  1. SABRIL (TABLET) [Suspect]
     Indication: INFANTILE SPASMS
     Dosage: 2 TABLETS
     Route: 048
  2. FELBATOL [Concomitant]
     Indication: PRODUCT USED FOR UNKNOWN INDICATION
  3. PULMACORT [Concomitant]
     Indication: PRODUCT USED FOR UNKNOWN INDICATION
  4. ALBUTEROL INHALER [Concomitant]
     Indication: PRODUCT USED FOR UNKNOWN INDICATION
  5. ROBINOL [Concomitant]
     Indication: PRODUCT USED FOR UNKNOWN INDICATION
  6. ATIVAN [Concomitant]
     Indication: PRODUCT USED FOR UNKNOWN INDICATION

REACTIONS (2)
  - Convulsion [Unknown]
  - Drug ineffective [Unknown]
